FAERS Safety Report 8874651 (Version 1)
Quarter: 2012Q4

REPORT INFORMATION
  Report Type: 
  Country: FR (occurrence: FR)
  Receive Date: 20121023
  Receipt Date: 20121023
  Transmission Date: 20130627
  Serious: Yes (Hospitalization)
  Sender: FDA-Public Use
  Company Number: FR-ROCHE-CID000000002199540

PATIENT
  Age: 81 Year
  Sex: Female

DRUGS (9)
  1. LEXOMIL [Suspect]
     Indication: ANXIETY DISORDER
     Route: 048
     Dates: end: 20120804
  2. ROCEPHINE [Suspect]
     Indication: INFECTION
     Route: 065
     Dates: start: 20120803, end: 20120804
  3. ROCEPHINE [Suspect]
     Route: 065
     Dates: start: 20120807, end: 20120820
  4. ZYPREXA [Suspect]
     Indication: DELIRIUM
     Route: 048
     Dates: end: 20120804
  5. TIAPRIDAL [Suspect]
     Indication: DELIRIUM
     Route: 048
     Dates: end: 20120804
  6. DEPAMIDE [Suspect]
     Indication: PRODUCT USED FOR UNKNOWN INDICATION
     Route: 048
     Dates: end: 20120804
  7. NOCTAMIDE [Suspect]
     Indication: SLEEP DISORDER
     Route: 048
     Dates: end: 20120804
  8. DOLIPRANE [Suspect]
     Indication: PRODUCT USED FOR UNKNOWN INDICATION
     Route: 048
     Dates: end: 20120804
  9. OMEPRAZOL [Suspect]
     Indication: PRODUCT USED FOR UNKNOWN INDICATION
     Route: 065
     Dates: end: 20120804

REACTIONS (1)
  - Ischaemic stroke [Recovered/Resolved with Sequelae]
